FAERS Safety Report 9717709 (Version 2)
Quarter: 2014Q1

REPORT INFORMATION
  Report Type: Spontaneous
  Country: US (occurrence: None)
  Receive Date: 20131125
  Receipt Date: 20140304
  Transmission Date: 20141002
  Serious: Yes (Other)
  Sender: FDA-Public Use
  Company Number: 2013P1021320

PATIENT
  Age: 20 Year
  Sex: Female

DRUGS (3)
  1. ISOTRETINOIN [Suspect]
     Dates: start: 20131021, end: 20131101
  2. BIRTH CONTROL PILLS [Concomitant]
  3. OTHER UNSPECIFIED MEDICATIONS [Concomitant]

REACTIONS (4)
  - Drug dose omission [None]
  - Pregnancy test positive [None]
  - Exposure during pregnancy [None]
  - Treatment noncompliance [None]
